FAERS Safety Report 5967446-1 (Version None)
Quarter: 2008Q4

REPORT INFORMATION
  Report Type: 
  Country: None (occurrence: None)
  Receive Date: 20081125
  Receipt Date: 20081118
  Transmission Date: 20090506
  Serious: Yes (Other)
  Sender: FDA-Public Use
  Company Number: PA-ALLERGAN-0814769US

PATIENT
  Sex: Male

DRUGS (2)
  1. BOTULINUM TOXIN TYPE A [Suspect]
     Indication: MUSCLE SPASTICITY
     Dosage: UNK, SINGLE
     Route: 030
  2. BOTULINUM TOXIN TYPE A [Suspect]
     Indication: CEREBRAL PALSY

REACTIONS (1)
  - BOTULISM [None]
